FAERS Safety Report 10281919 (Version 1)
Quarter: 2014Q3

REPORT INFORMATION
  Report Type: Spontaneous
  Country: US (occurrence: US)
  Receive Date: 20140707
  Receipt Date: 20140707
  Transmission Date: 20150326
  Serious: Yes (Disabling, Other)
  Sender: FDA-Public Use
  Company Number: US-PFIZER INC-2014183030

PATIENT
  Age: 52 Year
  Sex: Female
  Weight: 50.79 kg

DRUGS (1)
  1. RELPAX [Suspect]
     Active Substance: ELETRIPTAN HYDROBROMIDE
     Indication: MIGRAINE
     Dosage: 40 MG, AS NEEDED (NOT MORE THAN TWO TIMES A DAY)
     Route: 048

REACTIONS (3)
  - Motor dysfunction [Unknown]
  - Neuropathy peripheral [Unknown]
  - Headache [Unknown]

NARRATIVE: CASE EVENT DATE: 201201
